FAERS Safety Report 7238187-8 (Version None)
Quarter: 2011Q1

REPORT INFORMATION
  Report Type: 
  Country: None (occurrence: None)
  Receive Date: 20110121
  Receipt Date: 20110113
  Transmission Date: 20110831
  Serious: Yes (Other)
  Sender: FDA-Public Use
  Company Number: US-PFIZER INC-2010033862

PATIENT
  Sex: Female

DRUGS (3)
  1. CENTRUM SILVER [Suspect]
     Indication: VITAMIN SUPPLEMENTATION
     Route: 048
  2. CALTRATE 600 + VITAMIN D [Suspect]
     Indication: MINERAL SUPPLEMENTATION
     Dosage: UNK
     Route: 048
  3. LIPITOR [Suspect]
     Dosage: UNK
     Route: 048

REACTIONS (1)
  - HEPATIC ENZYME INCREASED [None]
